FAERS Safety Report 15984668 (Version 1)
Quarter: 2019Q1

REPORT INFORMATION
  Report Type: Spontaneous
  Country: US (occurrence: US)
  Receive Date: 20190219
  Receipt Date: 20190219
  Transmission Date: 20190418
  Serious: Yes (Disabling)
  Sender: FDA-Public Use
  Company Number: None

PATIENT
  Age: 82 Year
  Sex: Female
  Weight: 90 kg

DRUGS (8)
  1. PHENYLAPHRINE AS NEEDED [Concomitant]
  2. EQUATE SALINE NASAL SPRAY [Concomitant]
  3. TYLENOL AS NEEDED [Concomitant]
  4. SUDAFED SINUS CONGESTION [Concomitant]
  5. LORATADINE TABLETS [Concomitant]
     Active Substance: LORATADINE
  6. TIMOLOL MALEATE OPHTHALMIC SOLUTION [Suspect]
     Active Substance: TIMOLOL MALEATE
     Indication: GLAUCOMA
     Dosage: ?          QUANTITY:1 DROP(S);?
     Route: 047
     Dates: start: 20190212, end: 20190218
  7. LUMIGAN OPHTHALMIC SOLUTION [Concomitant]
  8. EQUATE ALLERGY RELIEF [Concomitant]

REACTIONS (13)
  - Oral pain [None]
  - Drug hypersensitivity [None]
  - Head discomfort [None]
  - Confusional state [None]
  - Glossodynia [None]
  - Lip pain [None]
  - Lip swelling [None]
  - Dysgeusia [None]
  - Disorientation [None]
  - Chest discomfort [None]
  - Malaise [None]
  - Abdominal discomfort [None]
  - Coating in mouth [None]

NARRATIVE: CASE EVENT DATE: 20190216
